FAERS Safety Report 22315253 (Version 1)
Quarter: 2023Q2

REPORT INFORMATION
  Report Type: Spontaneous
  Country: US (occurrence: None)
  Receive Date: 20230511
  Receipt Date: 20230511
  Transmission Date: 20230722
  Serious: No
  Sender: FDA-Public Use
  Company Number: None

PATIENT
  Age: 9 Year
  Sex: Female
  Weight: 22.95 kg

DRUGS (1)
  1. OXCARBAZEPINE [Suspect]
     Active Substance: OXCARBAZEPINE
     Indication: Seizure
     Dosage: OTHER QUANTITY : 330 330M;?FREQUENCY : TWICE A DAY;?
     Route: 048
     Dates: end: 20221216

REACTIONS (3)
  - Dizziness [None]
  - Headache [None]
  - Abdominal pain [None]
